FAERS Safety Report 14258359 (Version 4)
Quarter: 2018Q1

REPORT INFORMATION
  Report Type: Spontaneous
  Country: AU (occurrence: AU)
  Receive Date: 20171207
  Receipt Date: 20180205
  Transmission Date: 20180508
  Serious: Yes (Other)
  Sender: FDA-Public Use
  Company Number: AU-CONCORDIA PHARMACEUTICALS INC.-E2B_00008529

PATIENT
  Age: 83 Year
  Sex: Female

DRUGS (21)
  1. USTEKINUMAB [Concomitant]
     Active Substance: USTEKINUMAB
     Indication: PUSTULAR PSORIASIS
     Dates: start: 201102
  2. METHOTREXATE. [Concomitant]
     Active Substance: METHOTREXATE
     Indication: PUSTULAR PSORIASIS
     Dates: start: 2009
  3. THALIDOMIDE [Concomitant]
     Active Substance: THALIDOMIDE
     Indication: PUSTULAR PSORIASIS
  4. PREDNISOLONE. [Suspect]
     Active Substance: PREDNISOLONE
     Indication: PUSTULAR PSORIASIS
     Dates: start: 2010
  5. PREDNISOLONE. [Suspect]
     Active Substance: PREDNISOLONE
     Indication: PUSTULAR PSORIASIS
     Dates: start: 201102
  6. POTASSIUM [Concomitant]
     Active Substance: POTASSIUM
  7. FOLIC ACID. [Concomitant]
     Active Substance: FOLIC ACID
     Indication: PUSTULAR PSORIASIS
     Dosage: ON THE FOLLOWING DAY
     Dates: start: 2009
  8. FOLIC ACID. [Concomitant]
     Active Substance: FOLIC ACID
     Indication: PUSTULAR PSORIASIS
  9. CICLOSPORIN [Suspect]
     Active Substance: CYCLOSPORINE
  10. CICLOSPORIN [Suspect]
     Active Substance: CYCLOSPORINE
     Indication: PUSTULAR PSORIASIS
     Dates: start: 2010
  11. FRUSEMIDE [Concomitant]
     Active Substance: FUROSEMIDE
  12. CALCIPOTRIOL  BETAMETHASONE DIPROPIONATE [Concomitant]
     Route: 061
     Dates: start: 2010
  13. VITAMIN D [Concomitant]
     Active Substance: CHOLECALCIFEROL
     Indication: SUPPLEMENTATION THERAPY
  14. THALIDOMIDE [Concomitant]
     Active Substance: THALIDOMIDE
     Indication: PUSTULAR PSORIASIS
     Dates: start: 2010
  15. CICLOSPORIN [Suspect]
     Active Substance: CYCLOSPORINE
     Indication: PUSTULAR PSORIASIS
     Dates: start: 201102
  16. USTEKINUMAB [Concomitant]
     Active Substance: USTEKINUMAB
     Indication: PUSTULAR PSORIASIS
     Dates: start: 2010
  17. METFORMIN [Concomitant]
     Active Substance: METFORMIN HYDROCHLORIDE
  18. LISINOPRIL. [Concomitant]
     Active Substance: LISINOPRIL
  19. METHOTREXATE. [Concomitant]
     Active Substance: METHOTREXATE
     Indication: PUSTULAR PSORIASIS
  20. MICONAZOLE 2% [Concomitant]
     Active Substance: MICONAZOLE
     Dosage: SOLUTION
     Route: 061
     Dates: start: 2010
  21. POTASSIUM IODIDE. [Concomitant]
     Active Substance: POTASSIUM IODIDE
     Dosage: SATURATED SOLUTION
     Route: 061
     Dates: start: 2010

REACTIONS (2)
  - Renal impairment [Unknown]
  - Hypertension [Unknown]

NARRATIVE: CASE EVENT DATE: 2010
